FAERS Safety Report 8833874 (Version 2)
Quarter: 2012Q4

REPORT INFORMATION
  Report Type: 
  Country: IL (occurrence: IL)
  Receive Date: 20121011
  Receipt Date: 20121020
  Transmission Date: 20130627
  Serious: Yes (Death)
  Sender: FDA-Public Use
  Company Number: IL-009507513-1210ISR004417

PATIENT
  Age: 62 Year
  Sex: Female

DRUGS (2)
  1. SAPHRIS [Suspect]
     Dosage: UNK
     Dates: end: 20120930
  2. OLANZAPINE [Concomitant]

REACTIONS (2)
  - Death [Fatal]
  - Drug ineffective [Unknown]
